FAERS Safety Report 24255237 (Version 2)
Quarter: 2024Q4

REPORT INFORMATION
  Report Type: Report from Study
  Country: DE (occurrence: EU)
  Receive Date: 20240827
  Receipt Date: 20241001
  Transmission Date: 20250114
  Serious: Yes (Other)
  Sender: ASCENDIS PHARMA
  Company Number: DE-ASCENDIS PHARMA-2024EU005048

PATIENT

DRUGS (6)
  1. PALOPEGTERIPARATIDE [Suspect]
     Active Substance: PALOPEGTERIPARATIDE
     Indication: Hypoparathyroidism
     Dosage: 18 MICROGRAM, QD
     Route: 058
     Dates: start: 20240320
  2. PALOPEGTERIPARATIDE [Suspect]
     Active Substance: PALOPEGTERIPARATIDE
     Dosage: 15 MICROGRAM, QD
     Route: 058
     Dates: end: 20240408
  3. PALOPEGTERIPARATIDE [Suspect]
     Active Substance: PALOPEGTERIPARATIDE
     Dosage: 12 MICROGRAM, QD
     Route: 058
     Dates: start: 20240410
  4. PALOPEGTERIPARATIDE [Suspect]
     Active Substance: PALOPEGTERIPARATIDE
     Dosage: 9 MICROGRAM, QD
     Route: 058
  5. PALOPEGTERIPARATIDE [Suspect]
     Active Substance: PALOPEGTERIPARATIDE
     Dosage: 12 MICROGRAM, QD
     Route: 058
     Dates: start: 20240826
  6. MAGNESIUM [Concomitant]
     Active Substance: MAGNESIUM
     Indication: Hypoparathyroidism
     Dosage: 200 MILLIGRAM, TID
     Route: 048

REACTIONS (16)
  - Arrhythmia [Recovered/Resolved]
  - Muscle spasms [Recovering/Resolving]
  - Paraesthesia [Recovering/Resolving]
  - Photopsia [Recovered/Resolved]
  - Dizziness [Recovered/Resolved]
  - Blood calcium increased [Recovered/Resolved]
  - Pollakiuria [Recovered/Resolved]
  - Nausea [Recovered/Resolved]
  - Mouth ulceration [Recovered/Resolved]
  - Hypoaesthesia [Not Recovered/Not Resolved]
  - Blepharospasm [Not Recovered/Not Resolved]
  - Muscle twitching [Recovering/Resolving]
  - Device use error [Unknown]
  - Incorrect dose administered [Recovered/Resolved]
  - Discomfort [Recovering/Resolving]
  - Myalgia [Recovering/Resolving]

NARRATIVE: CASE EVENT DATE: 20240320
